FAERS Safety Report 11933115 (Version 2)
Quarter: 2016Q1

REPORT INFORMATION
  Report Type: Spontaneous
  Country: SK (occurrence: SK)
  Receive Date: 20160121
  Receipt Date: 20160303
  Transmission Date: 20160526
  Serious: Yes (Hospitalization)
  Sender: FDA-Public Use
  Company Number: SK-AMGEN-SVKSP2015128028

PATIENT
  Age: 8 Year
  Sex: Male

DRUGS (4)
  1. ENBREL [Suspect]
     Active Substance: ETANERCEPT
     Dosage: 10 MG (1ML), 2X/WEEK
     Route: 065
     Dates: end: 20151022
  2. METOTREXAT [Concomitant]
     Active Substance: METHOTREXATE SODIUM
     Dosage: UNK
     Dates: end: 20151019
  3. ENBREL [Suspect]
     Active Substance: ETANERCEPT
     Dosage: 0.9 ML, 2X/WEEK
     Route: 058
  4. ENBREL [Suspect]
     Active Substance: ETANERCEPT
     Indication: PRODUCT USED FOR UNKNOWN INDICATION
     Dosage: 10 MG (10 MG/1ML), UNK
     Route: 065
     Dates: start: 20130730

REACTIONS (5)
  - Petechiae [Recovered/Resolved]
  - Henoch-Schonlein purpura [Unknown]
  - Vasculitis [Recovered/Resolved]
  - C-reactive protein increased [Unknown]
  - Blood immunoglobulin A increased [Unknown]

NARRATIVE: CASE EVENT DATE: 201509
